FAERS Safety Report 5361137-6 (Version None)
Quarter: 2007Q2

REPORT INFORMATION
  Report Type: 
  Country: None (occurrence: None)
  Receive Date: 20070614
  Receipt Date: 20070608
  Transmission Date: 20071010
  Serious: Yes (Death)
  Sender: FDA-Public Use
  Company Number: 2007SP011624

PATIENT
  Age: 64 Year
  Sex: Female
  Weight: 59 kg

DRUGS (3)
  1. INTRON A [Suspect]
     Indication: HEPATITIS C
     Dosage: 6 MIU; IM
     Route: 030
     Dates: start: 20060919, end: 20070528
  2. REBETOL [Suspect]
     Indication: HEPATITIS C
     Dosage: 600 MG; PO
     Route: 048
     Dates: start: 20060919, end: 20070528
  3. CONIEL [Concomitant]

REACTIONS (1)
  - CEREBRAL HAEMORRHAGE [None]
